FAERS Safety Report 4617016-2 (Version None)
Quarter: 2005Q1

REPORT INFORMATION
  Report Type: 
  Country: None (occurrence: None)
  Receive Date: 20050318
  Receipt Date: 20040525
  Transmission Date: 20050727
  Serious: Yes (Death, Hospitalization)
  Sender: FDA-Public Use
  Company Number: HQWYE780910MAY04

PATIENT
  Age: 67 Year
  Sex: Male

DRUGS (9)
  1. RHEUMATREX [Suspect]
     Dosage: 4 MG 1X PER 1 WK, ORAL
     Route: 048
     Dates: start: 19990801, end: 20021001
  2. RHEUMATREX [Suspect]
     Dosage: 2 MG 1X PER 1 WK, ORAL
     Route: 048
     Dates: start: 20021023, end: 20031022
  3. RHEUMATREX [Suspect]
     Dosage: 4 MG 1X PER 1 WK, ORAL
     Route: 048
     Dates: start: 20031023, end: 20031119
  4. RHEUMATREX [Suspect]
     Dosage: 6 MG 1X PER 1 WK, ORAL
     Route: 048
     Dates: start: 20031120, end: 20040212
  5. MEDROL [Suspect]
     Dosage: 6 MG 1X PER 1 DAY, INTRAVENOUS
     Route: 042
     Dates: start: 20031203, end: 20040213
  6. METHOTREXATE [Suspect]
     Dosage: 2.5-5.0 MG WEEKLY, ORAL
     Route: 048
     Dates: start: 19970804, end: 19990801
  7. REMICADE [Suspect]
     Dosage: 3 MG/KG/DAY, INTRAVENOUS
     Route: 042
     Dates: start: 20031204, end: 20031204
  8. REMICADE [Suspect]
     Dosage: 3 MG/KG/DAY, INTRAVENOUS
     Route: 042
     Dates: start: 20031218, end: 20031218
  9. REMICADE [Suspect]
     Dosage: 3 MG/KG/DAY, INTRAVENOUS
     Route: 042
     Dates: start: 20040114, end: 20040114

REACTIONS (12)
  - ASPARTATE AMINOTRANSFERASE INCREASED [None]
  - BLOOD ALBUMIN DECREASED [None]
  - BLOOD ALKALINE PHOSPHATASE INCREASED [None]
  - BLOOD LACTATE DEHYDROGENASE INCREASED [None]
  - CARDIAC ARREST [None]
  - CHLAMYDIAL INFECTION [None]
  - DRUG INTERACTION [None]
  - INTERSTITIAL LUNG DISEASE [None]
  - PNEUMOCYSTIS JIROVECI PNEUMONIA [None]
  - PULMONARY MYCOSIS [None]
  - RENAL IMPAIRMENT [None]
  - RESPIRATORY FAILURE [None]
